FAERS Safety Report 11129638 (Version 4)
Quarter: 2020Q1

REPORT INFORMATION
  Report Type: Spontaneous
  Country: US (occurrence: US)
  Receive Date: 20150521
  Receipt Date: 20200205
  Transmission Date: 20200409
  Serious: Yes (Death, Hospitalization)
  Sender: FDA-Public Use
  Company Number: US-JNJFOC-20150509950

PATIENT
  Age: 80 Year
  Sex: Male

DRUGS (3)
  1. ASPRIN [Suspect]
     Active Substance: ASPIRIN
     Indication: ISCHAEMIC HEART DISEASE PROPHYLAXIS
     Route: 048
  2. XARELTO [Suspect]
     Active Substance: RIVAROXABAN
     Dosage: STRENGTH: 10 MG
     Route: 048
     Dates: end: 201302
  3. XARELTO [Suspect]
     Active Substance: RIVAROXABAN
     Indication: HEART RATE IRREGULAR
     Dosage: STRENGTH: 10 MG
     Route: 048
     Dates: start: 20130301, end: 20130408

REACTIONS (9)
  - Internal haemorrhage [Unknown]
  - Off label use [Unknown]
  - Product use in unapproved indication [Unknown]
  - Acute kidney injury [Fatal]
  - Haemoptysis [Recovered/Resolved]
  - Sepsis [Recovering/Resolving]
  - Occult blood positive [Unknown]
  - Respiratory failure [Fatal]
  - Pulmonary haemorrhage [Recovering/Resolving]

NARRATIVE: CASE EVENT DATE: 20130218
